FAERS Safety Report 15160289 (Version 8)
Quarter: 2018Q4

REPORT INFORMATION
  Report Type: Report from Study
  Country: IL (occurrence: IL)
  Receive Date: 20180718
  Receipt Date: 20181108
  Transmission Date: 20190204
  Serious: Yes (Hospitalization, Other)
  Sender: FDA-Public Use
  Company Number: IL-PFIZER INC-2018118853

PATIENT
  Age: 59 Year
  Sex: Female

DRUGS (7)
  1. INLYTA [Suspect]
     Active Substance: AXITINIB
     Dosage: 5 MG, 2X/DAY
     Route: 048
     Dates: start: 20180415, end: 20180711
  2. INLYTA [Suspect]
     Active Substance: AXITINIB
     Dosage: 5 MG, 2X/DAY, REGULARLY
     Route: 048
     Dates: start: 20180912, end: 20181030
  3. INLYTA [Suspect]
     Active Substance: AXITINIB
     Dosage: 3 MG, 2X/DAY
     Route: 048
     Dates: start: 20180719, end: 2018
  4. INLYTA [Suspect]
     Active Substance: AXITINIB
     Dosage: 3 MG IN THE MORNING AND 4 MG IN THE EVENING A DAY, ON A REGULAR BASIS
     Route: 048
     Dates: start: 20180902, end: 201809
  5. INLYTA [Suspect]
     Active Substance: AXITINIB
     Indication: RENAL CELL CARCINOMA
     Dosage: 5 MG, TWICE A DAY
     Route: 048
     Dates: start: 20161028, end: 201801
  6. INLYTA [Suspect]
     Active Substance: AXITINIB
     Dosage: 4 MG, 2X/DAY
     Route: 048
     Dates: start: 201801, end: 2018
  7. INLYTA [Suspect]
     Active Substance: AXITINIB
     Dosage: 3 MG IN THE MORNING AND 4 MG IN THE EVENING A DAY, ON A REGULAR BASIS
     Route: 048
     Dates: start: 2018, end: 20180824

REACTIONS (12)
  - Diarrhoea [Not Recovered/Not Resolved]
  - Abdominal pain [Recovered/Resolved]
  - Cholecystitis [Recovered/Resolved]
  - Hypertension [Not Recovered/Not Resolved]
  - Liver function test increased [Not Recovered/Not Resolved]
  - Stomatitis [Not Recovered/Not Resolved]
  - Decreased appetite [Not Recovered/Not Resolved]
  - Pyrexia [Not Recovered/Not Resolved]
  - Asthenia [Not Recovered/Not Resolved]
  - Nausea [Not Recovered/Not Resolved]
  - Neoplasm progression [Not Recovered/Not Resolved]
  - Body temperature increased [Not Recovered/Not Resolved]

NARRATIVE: CASE EVENT DATE: 20180822
